FAERS Safety Report 5432254-7 (Version None)
Quarter: 2007Q3

REPORT INFORMATION
  Report Type: 
  Country: None (occurrence: None)
  Receive Date: 20070830
  Receipt Date: 20070820
  Transmission Date: 20080115
  Serious: Yes (Other)
  Sender: FDA-Public Use
  Company Number: US-PFIZER INC-2007069237

PATIENT
  Sex: Female
  Weight: 54.4 kg

DRUGS (6)
  1. CHANTIX [Suspect]
     Indication: SMOKING CESSATION THERAPY
     Dates: start: 20070101, end: 20070101
  2. ZOLOFT [Suspect]
     Indication: DEPRESSION
     Dates: start: 20070805, end: 20070801
  3. LANTUS [Concomitant]
  4. XANAX [Concomitant]
  5. ASPIRIN [Concomitant]
  6. CADUET [Concomitant]

REACTIONS (2)
  - DIABETES MELLITUS [None]
  - DIZZINESS [None]
